FAERS Safety Report 13001057 (Version 1)
Quarter: 2016Q4

REPORT INFORMATION
  Report Type: Report from Study
  Country: US (occurrence: US)
  Receive Date: 20161206
  Receipt Date: 20161206
  Transmission Date: 20170207
  Serious: Yes (Other)
  Sender: FDA-Public Use
  Company Number: US-EMD SERONO-8113976

PATIENT
  Age: 28 Year
  Sex: Female
  Weight: 71 kg

DRUGS (2)
  1. REBIF [Suspect]
     Active Substance: INTERFERON BETA-1A
     Route: 058
     Dates: start: 20161007, end: 20161012
  2. REBIF [Suspect]
     Active Substance: INTERFERON BETA-1A
     Indication: MULTIPLE SCLEROSIS
     Route: 058
     Dates: start: 20160909

REACTIONS (13)
  - Injection site erythema [Unknown]
  - Peroneal nerve palsy [Recovered/Resolved]
  - Homicidal ideation [Not Recovered/Not Resolved]
  - Chills [Unknown]
  - Headache [Recovered/Resolved]
  - Hypoaesthesia [Not Recovered/Not Resolved]
  - Suicidal ideation [Not Recovered/Not Resolved]
  - Balance disorder [Not Recovered/Not Resolved]
  - Fatigue [Not Recovered/Not Resolved]
  - Temperature intolerance [Recovered/Resolved]
  - Head discomfort [Not Recovered/Not Resolved]
  - Paraesthesia [Recovered/Resolved]
  - Clumsiness [Recovered/Resolved]

NARRATIVE: CASE EVENT DATE: 201609
